FAERS Safety Report 25853649 (Version 2)
Quarter: 2025Q4

REPORT INFORMATION
  Report Type: Spontaneous
  Country: US (occurrence: US)
  Receive Date: 20250926
  Receipt Date: 20251121
  Transmission Date: 20260117
  Serious: No
  Sender: BIOGEN
  Company Number: US-BIOGEN-2025BI01324843

PATIENT
  Age: 39 Year
  Sex: Male

DRUGS (1)
  1. TYSABRI [Suspect]
     Active Substance: NATALIZUMAB
     Indication: Multiple sclerosis
     Dates: start: 20250917

REACTIONS (3)
  - Musculoskeletal chest pain [Unknown]
  - Back pain [Unknown]
  - Dermatitis [Unknown]

NARRATIVE: CASE EVENT DATE: 20250901
